FAERS Safety Report 13745389 (Version 4)
Quarter: 2018Q1

REPORT INFORMATION
  Report Type: Report from Study
  Country: IT (occurrence: IT)
  Receive Date: 20170712
  Receipt Date: 20180119
  Transmission Date: 20180508
  Serious: No
  Sender: FDA-Public Use
  Company Number: IT-ROCHE-1959938

PATIENT
  Age: 59 Year
  Sex: Male
  Weight: 79 kg

DRUGS (5)
  1. VEMURAFENIB. [Suspect]
     Active Substance: VEMURAFENIB
     Indication: MALIGNANT MELANOMA
     Dosage: VEMURAFENIB 960 MG (FOUR, 240 MG TABLETS) TWICE A DAY AS PER PROTOCOL
     Route: 048
     Dates: start: 20170523
  2. DELTACORTENE [Concomitant]
     Active Substance: PREDNISONE
     Indication: HYPERAMYLASAEMIA
     Route: 048
     Dates: start: 20171023
  3. COBIMETINIB. [Suspect]
     Active Substance: COBIMETINIB
     Indication: MALIGNANT MELANOMA
     Dosage: 60 MG (THREE, 20 MG TABLETS) ONCE A DAY AS PER PROTOCOL
     Route: 048
     Dates: start: 20170523
  4. BLINDED ATEZOLIZUMAB [Suspect]
     Active Substance: ATEZOLIZUMAB
     Indication: MALIGNANT MELANOMA
     Route: 042
     Dates: start: 20170621
  5. DELTACORTENE [Concomitant]
     Active Substance: PREDNISONE
     Indication: HYPERLIPASAEMIA

REACTIONS (1)
  - Blood creatine phosphokinase increased [Not Recovered/Not Resolved]

NARRATIVE: CASE EVENT DATE: 20170801
